FAERS Safety Report 18561182 (Version 5)
Quarter: 2022Q2

REPORT INFORMATION
  Report Type: Report from Study
  Country: ES (occurrence: ES)
  Receive Date: 20201130
  Receipt Date: 20220615
  Transmission Date: 20220721
  Serious: Yes (Life-Threatening, Hospitalization, Other)
  Sender: FDA-Public Use
  Company Number: ES-SHIRE-ES202002288

PATIENT
  Age: 61 Year
  Sex: Female
  Weight: 49 kg

DRUGS (63)
  1. TEDUGLUTIDE [Suspect]
     Active Substance: TEDUGLUTIDE
     Indication: Short-bowel syndrome
     Dosage: 2.4 MILLIGRAM, QD
     Route: 058
     Dates: start: 20190522, end: 20191119
  2. TEDUGLUTIDE [Suspect]
     Active Substance: TEDUGLUTIDE
     Indication: Short-bowel syndrome
     Dosage: 2.4 MILLIGRAM, QD
     Route: 058
     Dates: start: 20190522, end: 20191119
  3. TEDUGLUTIDE [Suspect]
     Active Substance: TEDUGLUTIDE
     Indication: Short-bowel syndrome
     Dosage: 2.4 MILLIGRAM, QD
     Route: 058
     Dates: start: 20190522, end: 20191119
  4. TEDUGLUTIDE [Suspect]
     Active Substance: TEDUGLUTIDE
     Indication: Short-bowel syndrome
     Dosage: 2.4 MILLIGRAM, QD
     Route: 058
     Dates: start: 20190522, end: 20191119
  5. LOPERAMIDE [Concomitant]
     Active Substance: LOPERAMIDE
     Indication: Diarrhoea
     Dosage: 4 MILLIGRAM, TID
     Route: 048
     Dates: start: 20170116, end: 20200209
  6. LOPERAMIDE [Concomitant]
     Active Substance: LOPERAMIDE
     Dosage: 4 UNK
     Route: 048
     Dates: start: 20200211
  7. LEVOTHYROXINE [Concomitant]
     Active Substance: LEVOTHYROXINE
     Indication: Hypothyroidism
     Dosage: 60 MICROGRAM, QD
     Route: 048
  8. CALCIFEDIOL [Concomitant]
     Active Substance: CALCIFEDIOL
     Indication: Vitamin D deficiency
     Dosage: 266 MICROGRAM
     Route: 048
     Dates: start: 20181106, end: 20200209
  9. CALCIFEDIOL [Concomitant]
     Active Substance: CALCIFEDIOL
     Dosage: 266 MICROGRAM, Q2WEEKS
     Route: 048
     Dates: start: 20200317, end: 20200506
  10. CALCIFEDIOL [Concomitant]
     Active Substance: CALCIFEDIOL
     Dosage: 266 MICROGRAM, 1/WEEK
     Route: 048
     Dates: start: 20200506
  11. OMEPRAZOLE [Concomitant]
     Active Substance: OMEPRAZOLE
     Indication: Prophylaxis against gastrointestinal ulcer
     Dosage: 20 MILLIGRAM, QD
     Route: 048
     Dates: end: 20200209
  12. OMEPRAZOLE [Concomitant]
     Active Substance: OMEPRAZOLE
     Dosage: 20 MILLIGRAM, QD
     Route: 048
     Dates: start: 20200216
  13. CHOLESTYRAMINE [Concomitant]
     Active Substance: CHOLESTYRAMINE
     Indication: Diarrhoea
     Dosage: 4 GRAM, QD
     Route: 048
     Dates: start: 20180907, end: 20200209
  14. CHOLESTYRAMINE [Concomitant]
     Active Substance: CHOLESTYRAMINE
     Dosage: 4 MILLIGRAM, BID
     Route: 048
     Dates: start: 20200216, end: 20201229
  15. CHOLESTYRAMINE [Concomitant]
     Active Substance: CHOLESTYRAMINE
     Dosage: 4 GRAM, TID
     Route: 048
     Dates: start: 20210428
  16. MEROPENEM [Concomitant]
     Active Substance: MEROPENEM
     Indication: Infection
     Dosage: 1 GRAM, TID
     Route: 042
     Dates: start: 20191128, end: 20191208
  17. MEROPENEM [Concomitant]
     Active Substance: MEROPENEM
     Indication: Urinary tract infection
     Dosage: 1 GRAM, TID
     Route: 042
     Dates: start: 20191224, end: 20191226
  18. MEROPENEM [Concomitant]
     Active Substance: MEROPENEM
     Dosage: 1 GRAM, BID
     Route: 042
     Dates: start: 20200209, end: 20200213
  19. MEROPENEM [Concomitant]
     Active Substance: MEROPENEM
     Dosage: 1 GRAM, TID
     Route: 042
     Dates: start: 20201229, end: 20210107
  20. MEROPENEM [Concomitant]
     Active Substance: MEROPENEM
     Dosage: 1 GRAM, TID
     Route: 042
     Dates: start: 20210214, end: 20210309
  21. MEROPENEM [Concomitant]
     Active Substance: MEROPENEM
     Dosage: 1 GRAM, TID
     Route: 042
     Dates: start: 20210318, end: 20210320
  22. MEROPENEM [Concomitant]
     Active Substance: MEROPENEM
     Dosage: 1 GRAM, TID
     Route: 042
     Dates: start: 20210412, end: 20210426
  23. MEROPENEM [Concomitant]
     Active Substance: MEROPENEM
     Dosage: 1 GRAM, TID
     Route: 042
     Dates: start: 20210501, end: 20210507
  24. MEROPENEM [Concomitant]
     Active Substance: MEROPENEM
     Dosage: 1 GRAM, TID
     Route: 042
     Dates: start: 20210509, end: 20210510
  25. PHYTONADIONE [Concomitant]
     Active Substance: PHYTONADIONE
     Indication: Vitamin K deficiency
     Dosage: 10 MILLIGRAM, TID
     Route: 048
     Dates: start: 20191125, end: 20191208
  26. PANTOPRAZOLE [Concomitant]
     Active Substance: PANTOPRAZOLE
     Indication: Prophylaxis against gastrointestinal ulcer
     Dosage: 40 MILLIGRAM, QD
     Route: 042
     Dates: start: 20191123, end: 20191214
  27. PANTOPRAZOLE [Concomitant]
     Active Substance: PANTOPRAZOLE
     Dosage: 40 MILLIGRAM, QD
     Route: 042
     Dates: start: 20200209, end: 20200216
  28. ENOXAPARIN [Concomitant]
     Active Substance: ENOXAPARIN
     Indication: Thrombosis prophylaxis
     Dosage: 40 MILLIGRAM, QD
     Route: 058
     Dates: start: 20191120, end: 20200109
  29. ACETAMINOPHEN [Concomitant]
     Active Substance: ACETAMINOPHEN
     Indication: Pain
     Dosage: 1 GRAM
     Route: 042
     Dates: start: 20191123, end: 20200114
  30. AMOXICILLIN\CLAVULANIC ACID [Concomitant]
     Active Substance: AMOXICILLIN\CLAVULANIC ACID
     Indication: Infection
     Dosage: 1 GRAM, TID
     Route: 042
     Dates: start: 20191226, end: 20200104
  31. METOCLOPRAMIDE [Concomitant]
     Active Substance: METOCLOPRAMIDE
     Indication: Vomiting
     Dosage: 10 MILLIGRAM
     Route: 042
     Dates: start: 20191226, end: 20200114
  32. METOCLOPRAMIDE [Concomitant]
     Active Substance: METOCLOPRAMIDE
     Indication: Nausea
     Dosage: 10 MILLIGRAM
     Route: 042
     Dates: start: 20200209, end: 20200209
  33. SCOPOLAMINE [Concomitant]
     Active Substance: SCOPOLAMINE
     Indication: Nausea
     Dosage: 20 MILLIGRAM
     Route: 042
     Dates: start: 20191206, end: 20200114
  34. IRON SUCROSE [Concomitant]
     Active Substance: IRON SUCROSE
     Indication: Iron deficiency
     Dosage: 200 MILLIGRAM, 3/WEEK
     Route: 042
     Dates: start: 20200219, end: 20200302
  35. SCOPOLAMINE [Concomitant]
     Active Substance: SCOPOLAMINE
     Indication: Bladder spasm
     Dosage: 20 MILLIGRAM, QD
     Route: 042
     Dates: start: 20200225, end: 20200229
  36. DAPTOMYCIN [Concomitant]
     Active Substance: DAPTOMYCIN
     Indication: Urinary tract infection
     Dosage: 300 MILLIGRAM, QD
     Route: 042
     Dates: start: 20200209, end: 20200211
  37. DAPTOMYCIN [Concomitant]
     Active Substance: DAPTOMYCIN
     Dosage: 600 MILLIGRAM, QD
     Route: 042
     Dates: start: 20210118, end: 20210309
  38. DAPTOMYCIN [Concomitant]
     Active Substance: DAPTOMYCIN
     Dosage: 600 MILLIGRAM, QD
     Route: 042
     Dates: start: 20210410, end: 20210412
  39. DAPTOMYCIN [Concomitant]
     Active Substance: DAPTOMYCIN
     Dosage: 600 MILLIGRAM, QD
     Route: 042
     Dates: start: 20210430, end: 20210506
  40. PIPERACILLIN AND TAZOBACTAM [Concomitant]
     Active Substance: PIPERACILLIN SODIUM\TAZOBACTAM SODIUM
     Indication: Urinary tract infection
     Dosage: 4 GRAM
     Route: 042
     Dates: start: 20200209, end: 20200209
  41. AMPICILLIN [Concomitant]
     Active Substance: AMPICILLIN
     Indication: Infection
     Dosage: 2 GRAM, QID
     Route: 042
     Dates: start: 20210119, end: 20210126
  42. ERTAPENEM [Concomitant]
     Active Substance: ERTAPENEM
     Indication: Infection
     Dosage: 1 GRAM, QD
     Route: 042
     Dates: start: 20210201, end: 20210309
  43. ERTAPENEM [Concomitant]
     Active Substance: ERTAPENEM
     Dosage: 1 GRAM, QD
     Route: 042
     Dates: start: 20210320, end: 20210324
  44. ERTAPENEM [Concomitant]
     Active Substance: ERTAPENEM
     Dosage: 1 GRAM, QD
     Route: 042
     Dates: start: 20210410, end: 20210412
  45. ERTAPENEM [Concomitant]
     Active Substance: ERTAPENEM
     Dosage: 1 GRAM, QD
     Route: 042
     Dates: start: 20210709, end: 20210721
  46. AMIKACIN [Concomitant]
     Active Substance: AMIKACIN
     Indication: Infection
     Dosage: 1 GRAM, QD
     Route: 042
     Dates: start: 20210203, end: 20210309
  47. AMIKACIN [Concomitant]
     Active Substance: AMIKACIN
     Dosage: 600 MILLIGRAM, BID
     Route: 042
     Dates: start: 20210502, end: 20210528
  48. AMIKACIN [Concomitant]
     Active Substance: AMIKACIN
     Dosage: 260 MILLIGRAM, QD
     Route: 042
     Dates: start: 20210709, end: 20210721
  49. AMIKACIN [Concomitant]
     Active Substance: AMIKACIN
     Dosage: 250 MILLIGRAM, QD
     Route: 042
     Dates: start: 20210709, end: 20210721
  50. VANCOMYCIN [Concomitant]
     Active Substance: VANCOMYCIN
     Indication: Infection
     Dosage: 1 GRAM, BID
     Route: 042
     Dates: start: 20210214, end: 20210309
  51. FLUCONAZOLE [Concomitant]
     Active Substance: FLUCONAZOLE
     Indication: Infection
     Dosage: 800 MILLIGRAM, QD
     Route: 042
     Dates: start: 20210216, end: 20210301
  52. FLUCONAZOLE [Concomitant]
     Active Substance: FLUCONAZOLE
     Dosage: 200 MILLIGRAM, BID
     Route: 048
     Dates: start: 20210226, end: 20210309
  53. FLUCONAZOLE [Concomitant]
     Active Substance: FLUCONAZOLE
     Dosage: 400 MILLIGRAM, QD
     Route: 048
     Dates: start: 20210320, end: 20210428
  54. FLUCONAZOLE [Concomitant]
     Active Substance: FLUCONAZOLE
     Dosage: 200 MILLIGRAM, BID
     Route: 048
     Dates: start: 20210501, end: 20210510
  55. ANIDULAFUNGIN [Concomitant]
     Active Substance: ANIDULAFUNGIN
     Indication: Infection
     Dosage: 200 MILLIGRAM, QD
     Route: 042
     Dates: start: 20210216, end: 20210301
  56. ANIDULAFUNGIN [Concomitant]
     Active Substance: ANIDULAFUNGIN
     Dosage: 100 MILLIGRAM, QD
     Route: 042
     Dates: start: 20210318, end: 20210320
  57. ANIDULAFUNGIN [Concomitant]
     Active Substance: ANIDULAFUNGIN
     Dosage: 100 MILLIGRAM, QD
     Route: 042
     Dates: start: 20210410, end: 20210412
  58. ANIDULAFUNGIN [Concomitant]
     Active Substance: ANIDULAFUNGIN
     Dosage: 100 MILLIGRAM, QD
     Route: 042
     Dates: start: 20210501, end: 20210502
  59. CEFTRIAXONE [Concomitant]
     Active Substance: CEFTRIAXONE
     Indication: Infection
     Dosage: 1 GRAM, QD
     Route: 042
     Dates: start: 20210317, end: 20210401
  60. CEFTRIAXONE [Concomitant]
     Active Substance: CEFTRIAXONE
     Dosage: 2 GRAM, QD
     Route: 042
     Dates: start: 20210510, end: 20210528
  61. TIGECYCLINE [Concomitant]
     Active Substance: TIGECYCLINE
     Indication: Infection
     Dosage: 60 MILLIGRAM, QD
     Route: 042
     Dates: start: 20210516, end: 20210528
  62. TEICOPLANIN [Concomitant]
     Active Substance: TEICOPLANIN
     Indication: Infection
     Dosage: 400 MILLIGRAM, BID
     Route: 042
     Dates: start: 20210514, end: 20210527
  63. METRONIDAZOLE [Concomitant]
     Active Substance: METRONIDAZOLE
     Indication: Infection
     Dosage: 600 MILLIGRAM
     Route: 042
     Dates: start: 20210317, end: 20210401

REACTIONS (4)
  - Intestinal perforation [Recovered/Resolved with Sequelae]
  - Renal failure [Recovered/Resolved with Sequelae]
  - Enterocutaneous fistula [Not Recovered/Not Resolved]
  - Duodenal polyp [Recovered/Resolved]

NARRATIVE: CASE EVENT DATE: 20191121
